FAERS Safety Report 7799234-8 (Version None)
Quarter: 2011Q4

REPORT INFORMATION
  Report Type: 
  Country: None (occurrence: None)
  Receive Date: 20111006
  Receipt Date: 20110930
  Transmission Date: 20120403
  Serious: Yes (Death, Hospitalization, Other)
  Sender: FDA-Public Use
  Company Number: JP-PFIZER INC-2010132702

PATIENT
  Age: 58 Year
  Sex: Male
  Weight: 60.2 kg

DRUGS (5)
  1. SUTENT [Suspect]
     Dosage: 25 MG, 1X/DAY
     Dates: start: 20100819, end: 20100916
  2. SUTENT [Suspect]
     Dosage: 25 MG, 1X/DAY
     Dates: start: 20101001, end: 20101006
  3. SUTENT [Suspect]
     Indication: RENAL CELL CARCINOMA
     Dosage: 37.5 MG, 1X/DAY
     Route: 048
     Dates: start: 20100513, end: 20100604
  4. HUMULIN R [Concomitant]
     Indication: DIABETES MELLITUS
     Dosage: 8 UNITS, 3X/DAY
     Route: 058
     Dates: start: 20040801, end: 20041010
  5. SUTENT [Suspect]
     Dosage: 25 MG, 1X/DAY
     Dates: start: 20100618, end: 20100716

REACTIONS (5)
  - DISSEMINATED INTRAVASCULAR COAGULATION [None]
  - PLATELET COUNT DECREASED [None]
  - NECROTISING FASCIITIS [None]
  - RHABDOMYOLYSIS [None]
  - MULTI-ORGAN FAILURE [None]
